FAERS Safety Report 9783290 (Version 2)
Quarter: 2013Q4

REPORT INFORMATION
  Report Type: Spontaneous
  Country: AU (occurrence: AU)
  Receive Date: 20131226
  Receipt Date: 20131226
  Transmission Date: 20140711
  Serious: Yes (Hospitalization)
  Sender: FDA-Public Use
  Company Number: AU-PFIZER INC-2013307673

PATIENT
  Age: 63 Year
  Sex: Female
  Weight: 80 kg

DRUGS (4)
  1. PRISTIQ [Suspect]
     Indication: MAJOR DEPRESSION
     Dosage: 100 MG, 2X/DAY
     Route: 048
     Dates: start: 201304, end: 2013
  2. OLANZAPINE [Concomitant]
     Dosage: UNK
  3. TRAMADOL [Concomitant]
     Indication: BACK PAIN
     Dosage: {500 MG / DAY
     Route: 048
  4. KALMA [Concomitant]
     Dosage: 2 MG, 2X/DAY
     Route: 048

REACTIONS (2)
  - Serotonin syndrome [Recovered/Resolved]
  - Delirium [Recovered/Resolved]
